FAERS Safety Report 17254311 (Version 2)
Quarter: 2020Q3

REPORT INFORMATION
  Report Type: Spontaneous
  Country: FR (occurrence: FR)
  Receive Date: 20200109
  Receipt Date: 20200817
  Transmission Date: 20201102
  Serious: Yes (Hospitalization, Other)
  Sender: FDA-Public Use
  Company Number: FR-MYLANLABS-2020M1002120

PATIENT
  Age: 83 Year
  Sex: Male
  Weight: 53 kg

DRUGS (12)
  1. REOPRO [Interacting]
     Active Substance: ABCIXIMAB
     Indication: ANGIOCARDIOGRAM
     Dosage: 1 DOSAGE FORM, QD (ONE SINGLE BOLUS IN ONE DAY)
     Route: 040
     Dates: start: 20170324, end: 20170324
  2. ANGIOX [Interacting]
     Active Substance: BIVALIRUDIN
     Indication: ACUTE CORONARY SYNDROME
     Dosage: 250 MG (STRENGTH) ONE DAY
     Route: 040
     Dates: start: 20170324, end: 20170324
  3. ANGIOX [Interacting]
     Active Substance: BIVALIRUDIN
     Dosage: UNK
     Route: 041
  4. NORADRAN [Concomitant]
     Indication: PRODUCT USED FOR UNKNOWN INDICATION
     Dosage: UNK
     Route: 065
  5. RISORDAN                           /07346501/ [Concomitant]
     Active Substance: ISOSORBIDE DINITRATE
     Dosage: UNK
     Route: 065
  6. KARDEGIC [Interacting]
     Active Substance: ASPIRIN DL-LYSINE
     Indication: PRODUCT USED FOR UNKNOWN INDICATION
     Dosage: UNK
     Route: 065
  7. ISOPTINE [Concomitant]
     Active Substance: VERAPAMIL HYDROCHLORIDE
     Dosage: UNK
     Route: 065
  8. ROGART [Concomitant]
     Indication: PRODUCT USED FOR UNKNOWN INDICATION
     Dosage: UNK
  9. SERTRALINE [Suspect]
     Active Substance: SERTRALINE HYDROCHLORIDE
     Indication: DEPRESSION
     Dosage: UNK
     Route: 048
  10. REOPRO [Interacting]
     Active Substance: ABCIXIMAB
     Dosage: 1 DOSAGE FORM, QD (ONE SINGLE BOLUS IN ONE DAY)
     Route: 042
     Dates: start: 20170324, end: 20170324
  11. KRENOSIN [Concomitant]
     Active Substance: ADENOSINE
     Indication: PRODUCT USED FOR UNKNOWN INDICATION
     Dosage: UNK
     Route: 065
  12. NORADRENALIN                       /00127501/ [Concomitant]
     Active Substance: NOREPINEPHRINE\NOREPINEPHRINE BITARTRATE
     Dosage: UNK
     Route: 065

REACTIONS (6)
  - Gingival bleeding [Unknown]
  - Thrombocytopenia [Unknown]
  - Mallory-Weiss syndrome [Unknown]
  - Oesophageal ulcer haemorrhage [Recovered/Resolved]
  - Anaemia [Recovered/Resolved]
  - Drug interaction [Unknown]
